FAERS Safety Report 6734710-8 (Version None)
Quarter: 2010Q2

REPORT INFORMATION
  Report Type: 
  Country: None (occurrence: None)
  Receive Date: 20100519
  Receipt Date: 20100519
  Transmission Date: 20101027
  Serious: Yes (Death, Hospitalization, Other)
  Sender: FDA-Public Use
  Company Number: None

PATIENT
  Age: 76 Year
  Sex: Male
  Weight: 86.1834 kg

DRUGS (1)
  1. CLINDAMYCIN PHOSPHATE [Suspect]
     Indication: FISTULA
     Dosage: 600 MG IV PIGGYBACK
     Route: 042
     Dates: start: 20080825, end: 20080825

REACTIONS (7)
  - ASTHENIA [None]
  - DECUBITUS ULCER [None]
  - DIALYSIS [None]
  - DIARRHOEA [None]
  - MALAISE [None]
  - MEDICATION ERROR [None]
  - RENAL FAILURE [None]
